FAERS Safety Report 16050573 (Version 1)
Quarter: 2019Q1

REPORT INFORMATION
  Report Type: Spontaneous
  Country: FR (occurrence: FR)
  Receive Date: 20190308
  Receipt Date: 20190308
  Transmission Date: 20190418
  Serious: Yes (Hospitalization)
  Sender: FDA-Public Use
  Company Number: FR-ACCORD-111485

PATIENT
  Age: 55 Year
  Sex: Male
  Weight: 55 kg

DRUGS (7)
  1. CISPLATIN. [Suspect]
     Active Substance: CISPLATIN
     Indication: NASAL SINUS CANCER
     Route: 041
     Dates: start: 20180802
  2. ORAMORPH [Concomitant]
     Active Substance: MORPHINE SULFATE
     Route: 048
  3. DUROGESIC [Concomitant]
     Active Substance: FENTANYL
     Route: 062
  4. PARACETAMOL [Concomitant]
     Active Substance: ACETAMINOPHEN
     Route: 048
  5. BISOPROLOL [Concomitant]
     Active Substance: BISOPROLOL
     Route: 048
  6. DOCETAXEL. [Suspect]
     Active Substance: DOCETAXEL
     Indication: NASAL SINUS CANCER
     Route: 041
     Dates: start: 20180802
  7. FLUOROURACIL. [Suspect]
     Active Substance: FLUOROURACIL
     Indication: NASAL SINUS CANCER
     Route: 041
     Dates: start: 20180802, end: 20180806

REACTIONS (1)
  - Acute kidney injury [Recovering/Resolving]

NARRATIVE: CASE EVENT DATE: 20180813
